FAERS Safety Report 11157337 (Version 4)
Quarter: 2016Q4

REPORT INFORMATION
  Report Type: Spontaneous
  Country: US (occurrence: US)
  Receive Date: 20150603
  Receipt Date: 20161228
  Transmission Date: 20170206
  Serious: Yes (Disabling, Other)
  Sender: FDA-Public Use
  Company Number: US-PFIZER INC-2015181987

PATIENT
  Age: 24 Year
  Sex: Male

DRUGS (20)
  1. PROMETHAZINE W/CODEINE [Concomitant]
     Active Substance: CODEINE\PROMETHAZINE
     Indication: COUGH
     Dosage: 5 ML, AS NEEDED [CODEINE PHOSPHATE-10]/[PROMETHAZINE HYDROCHLORIDE-6.25](TAKE ONE TEASPOON FULL)
     Route: 048
  2. OXYCODONE [Concomitant]
     Active Substance: OXYCODONE
     Indication: ARTHRALGIA
     Dosage: 10 MG, 4X/DAY (TAKE ONE TABLET FOUR TIMES A DAY )
     Route: 048
  3. PROMETHAZINE [Concomitant]
     Active Substance: PROMETHAZINE\PROMETHAZINE HYDROCHLORIDE
     Indication: NAUSEA
     Dosage: 25 MG, AS NEEDED (TAKE ONE TABLET FOUR TIMES A DAY)
     Route: 048
  4. MECLIZINE [Concomitant]
     Active Substance: MECLIZINE HYDROCHLORIDE
     Dosage: 25 MG, AS NEEDED (TAKE ONE TABLET EVERY EIGHT HOURS)
     Route: 048
  5. CARBAMAZEPINE. [Concomitant]
     Active Substance: CARBAMAZEPINE
     Dosage: 200 MG, 1X/DAY (TAKE ONE CAPSULE EVERY EVENING FOR 10 DAYS THEN INCREASE)
     Route: 048
  6. OXYCODONE [Concomitant]
     Active Substance: OXYCODONE
     Indication: TOOTHACHE
     Dosage: 10 MG, 4X/DAY (TAKE ONE TABLET SCHEDULED FOR DENTAL PAIN)
     Route: 048
  7. LYRICA [Suspect]
     Active Substance: PREGABALIN
     Indication: NEURALGIA
     Dosage: 300 MG, 2X/DAY (ONE CAPSULE)
     Route: 048
  8. AMOXICILLIN AND CLAVULANATE POTASSIUM [Concomitant]
     Active Substance: AMOXICILLIN\CLAVULANATE POTASSIUM
     Indication: SKIN INFECTION
     Dosage: 2X/DAY [AMOXICILLIN-500]/[CLAVULANATE POTASSIUM-125](TAKE ONE TABLET UNTIL ALL TAKEN FOR SKIN INFEC)
     Route: 048
  9. LEVOFLOXACIN. [Concomitant]
     Active Substance: LEVOFLOXACIN
     Indication: LUNG INFECTION
     Dosage: 500 MG, DAILY (TAKE ONE TABLET EVERY DAY)
     Route: 048
  10. ALBUTEROL. [Concomitant]
     Active Substance: ALBUTEROL
     Indication: CHRONIC OBSTRUCTIVE PULMONARY DISEASE
     Dosage: UNK, AS NEEDED (USE ONE VIAL IN NEBULIZER MACHINE EVERY FOUR HOURS)
     Route: 055
  11. MECLIZINE HCL [Concomitant]
     Active Substance: MECLIZINE HYDROCHLORIDE
     Indication: VERTIGO
  12. LYRICA [Suspect]
     Active Substance: PREGABALIN
     Indication: PAIN
     Dosage: 300 MG, AS NEEDED
     Route: 048
  13. TRAZODONE HYDROCHLORIDE. [Concomitant]
     Active Substance: TRAZODONE HYDROCHLORIDE
     Indication: MIGRAINE
     Dosage: 50 MG, 4X/DAY (TAKE ONE TABLET)
     Route: 048
  14. DIPHENHYDRAMINE HCL [Concomitant]
     Active Substance: DIPHENHYDRAMINE HYDROCHLORIDE
     Indication: PRURITUS
     Dosage: 10 ML, AS NEEDED (TAKE 2 TEASPOONS FULL)
     Route: 048
  15. LYRICA [Suspect]
     Active Substance: PREGABALIN
     Indication: TRIGEMINAL NEURALGIA
     Dosage: 300 MG, 3X/DAY
     Route: 048
     Dates: start: 20151123
  16. LYRICA [Suspect]
     Active Substance: PREGABALIN
     Indication: NEURALGIA
  17. VERAPAMIL [Concomitant]
     Active Substance: VERAPAMIL HYDROCHLORIDE
     Dosage: 180 MG, DAILY (TAKE ONE TABLET EVERYDAY)
     Route: 048
  18. ESCITALOPRAM OXALATE. [Concomitant]
     Active Substance: ESCITALOPRAM OXALATE
     Dosage: 10 MG, 1X/DAY (TAKE ONE TABLET EVERY MORNING)
     Route: 048
  19. AMOXICILLIN AND CLAVULANATE POTASSIUM [Concomitant]
     Active Substance: AMOXICILLIN\CLAVULANATE POTASSIUM
     Indication: SINUSITIS
     Dosage: 1 DF, 2X/DAY  [AMOXICILLIN-875]/[CLAVULANATE POTASSIUM-125] (TAKE ONE TABLET FOR SINUSITIS)
     Route: 048
  20. MECLIZINE HCL [Concomitant]
     Active Substance: MECLIZINE HYDROCHLORIDE
     Indication: HYPERSENSITIVITY
     Dosage: 25 MG, 1X/DAY

REACTIONS (2)
  - Cranial nerve disorder [Unknown]
  - Trigeminal neuralgia [Unknown]
